FAERS Safety Report 17585155 (Version 1)
Quarter: 2020Q1

REPORT INFORMATION
  Report Type: Spontaneous
  Country: US (occurrence: US)
  Receive Date: 20200325
  Receipt Date: 20200325
  Transmission Date: 20200409
  Serious: No
  Sender: FDA-Public Use
  Company Number: None

PATIENT
  Age: 3 Year
  Sex: Female
  Weight: 16.2 kg

DRUGS (6)
  1. MONTELUKAST [Suspect]
     Active Substance: MONTELUKAST SODIUM
     Indication: ASTHMA
     Dosage: ?          QUANTITY:1 TABLET(S);?
     Route: 048
     Dates: start: 20200315, end: 20200325
  2. PROAIR HFA [Concomitant]
     Active Substance: ALBUTEROL SULFATE
  3. FLINSTONE VITAMINS [Concomitant]
  4. ASMANEX [Concomitant]
     Active Substance: MOMETASONE FUROATE
  5. MOTRIN [Concomitant]
     Active Substance: IBUPROFEN
  6. TYLENOL [Concomitant]
     Active Substance: ACETAMINOPHEN

REACTIONS (7)
  - Aggression [None]
  - Nightmare [None]
  - Arthralgia [None]
  - Screaming [None]
  - Intentional self-injury [None]
  - Crying [None]
  - Middle insomnia [None]

NARRATIVE: CASE EVENT DATE: 20200325
